FAERS Safety Report 20939180 (Version 1)
Quarter: 2022Q2

REPORT INFORMATION
  Report Type: Spontaneous
  Country: ES (occurrence: ES)
  Receive Date: 20220609
  Receipt Date: 20220609
  Transmission Date: 20220721
  Serious: Yes (Hospitalization)
  Sender: FDA-Public Use
  Company Number: None

PATIENT
  Age: 67 Year
  Sex: Female

DRUGS (2)
  1. SPIRONOLACTONE [Suspect]
     Active Substance: SPIRONOLACTONE
     Indication: Ascites
     Dosage: 50 MG, 1X/DAY (EVERY 24 HOURS)
     Route: 048
     Dates: start: 20210217, end: 20210222
  2. OMEPRAZOL CINFA [Concomitant]
     Indication: Dyspepsia
     Dosage: 20 MG, 1X/DAY (BEFORE BREAKFAST)
     Route: 048
     Dates: start: 20210216

REACTIONS (1)
  - Toxic skin eruption [Recovered/Resolved]

NARRATIVE: CASE EVENT DATE: 20210222
